FAERS Safety Report 7904270-4 (Version None)
Quarter: 2011Q4

REPORT INFORMATION
  Report Type: 
  Country: None (occurrence: None)
  Receive Date: 20111109
  Receipt Date: 20111031
  Transmission Date: 20120403
  Serious: No
  Sender: FDA-Public Use
  Company Number: US-ASTRAZENECA-2011SE60994

PATIENT
  Age: 63 Year
  Sex: Female

DRUGS (9)
  1. CELEXA [Concomitant]
  2. NEXIUM [Suspect]
     Indication: GASTROOESOPHAGEAL REFLUX DISEASE
     Route: 048
  3. LORTAB [Concomitant]
  4. SYNTHROID [Concomitant]
  5. ARIMIDEX [Concomitant]
     Route: 048
  6. PRILOSEC [Suspect]
     Indication: GASTROOESOPHAGEAL REFLUX DISEASE
     Route: 048
  7. PULMICORT FLEXHALER [Concomitant]
     Route: 055
  8. CRESTOR [Concomitant]
     Route: 048
  9. SEROQUEL [Concomitant]
     Route: 048

REACTIONS (6)
  - CHEST PAIN [None]
  - DRUG DOSE OMISSION [None]
  - GASTROOESOPHAGEAL REFLUX DISEASE [None]
  - DYSPEPSIA [None]
  - MALAISE [None]
  - DRUG INEFFECTIVE [None]
